FAERS Safety Report 19753456 (Version 1)
Quarter: 2021Q3

REPORT INFORMATION
  Report Type: Spontaneous
  Country: US (occurrence: US)
  Receive Date: 20210826
  Receipt Date: 20210826
  Transmission Date: 20211014
  Serious: Yes (Other)
  Sender: FDA-Public Use
  Company Number: None

PATIENT
  Age: 27 Year
  Sex: Female
  Weight: 101.5 kg

DRUGS (3)
  1. DOCETAXEL 75 MG/M2 [Suspect]
     Active Substance: DOCETAXEL
     Indication: BREAST CANCER
     Dates: start: 20210712
  2. TRASTUZUMAB. [Concomitant]
     Active Substance: TRASTUZUMAB
     Dates: start: 20210712
  3. PERTUZUMAB. [Concomitant]
     Active Substance: PERTUZUMAB
     Dates: start: 20210712

REACTIONS (4)
  - Flushing [None]
  - Infusion related reaction [None]
  - Chest discomfort [None]
  - Back pain [None]

NARRATIVE: CASE EVENT DATE: 20210712
